FAERS Safety Report 4723496-4 (Version None)
Quarter: 2005Q3

REPORT INFORMATION
  Report Type: 
  Country: None (occurrence: None)
  Receive Date: 20050725
  Receipt Date: 20040716
  Transmission Date: 20060218
  Serious: No
  Sender: FDA-Public Use
  Company Number: US013232

PATIENT
  Sex: Female

DRUGS (5)
  1. DYAZIDE [Suspect]
     Indication: HYPERTENSION
     Route: 048
  2. PROVIGIL [Suspect]
     Indication: SOMNOLENCE
     Dates: start: 20040324
  3. ESTRADERM [Suspect]
     Route: 065
  4. LEXAPRO [Suspect]
     Indication: HYPERTENSION
     Route: 065
  5. LIPITOR [Suspect]

REACTIONS (2)
  - DRUG INTERACTION [None]
  - FLUSHING [None]
